FAERS Safety Report 7809361-4 (Version None)
Quarter: 2011Q4

REPORT INFORMATION
  Report Type: 
  Country: None (occurrence: None)
  Receive Date: 20111012
  Receipt Date: 20111006
  Transmission Date: 20120403
  Serious: Yes (Other)
  Sender: FDA-Public Use
  Company Number: US-ABBOTT-11P-163-0862622-00

PATIENT
  Sex: Male
  Weight: 62.198 kg

DRUGS (12)
  1. PROGRAF [Concomitant]
     Indication: HEART TRANSPLANT
  2. VORICONAZALE [Concomitant]
     Indication: BRONCHOPULMONARY ASPERGILLOSIS
  3. ZORTRESS [Concomitant]
     Indication: HEART TRANSPLANT
  4. ASPIRIN [Concomitant]
     Indication: PRODUCT USED FOR UNKNOWN INDICATION
  5. METFORMIN HYDROCHLORIDE [Concomitant]
     Indication: DIABETES MELLITUS
  6. LUPRON DEPOT [Suspect]
     Indication: PROSTATE CANCER
     Route: 050
     Dates: start: 20110701
  7. PROVACHOL [Concomitant]
     Indication: PRODUCT USED FOR UNKNOWN INDICATION
  8. VITAMIN D [Concomitant]
     Indication: PRODUCT USED FOR UNKNOWN INDICATION
  9. NIACIN (OVER THE COUNTER) [Concomitant]
     Indication: SUPPLEMENTATION THERAPY
  10. FISH OIL [Concomitant]
     Indication: PRODUCT USED FOR UNKNOWN INDICATION
  11. LUPRON DEPOT [Suspect]
     Indication: PROSTATE CANCER
     Dates: start: 20110607, end: 20110607
  12. ASPIRIN [Concomitant]
     Route: 048

REACTIONS (4)
  - ABDOMINAL PAIN [None]
  - DIARRHOEA [None]
  - HEADACHE [None]
  - TEMPORAL ARTERITIS [None]
